APPROVED DRUG PRODUCT: ACETAMINOPHEN
Active Ingredient: ACETAMINOPHEN
Strength: 500MG/50ML (10MG/ML)
Dosage Form/Route: SOLUTION;INTRAVENOUS
Application: A219215 | Product #001 | TE Code: AP
Applicant: GLAND PHARMA LTD
Approved: Apr 2, 2025 | RLD: No | RS: No | Type: RX